FAERS Safety Report 24093069 (Version 3)
Quarter: 2024Q3

REPORT INFORMATION
  Report Type: Spontaneous
  Country: FR (occurrence: FR)
  Receive Date: 20240715
  Receipt Date: 20240805
  Transmission Date: 20241016
  Serious: Yes (Death, Other)
  Sender: ANI
  Company Number: FR-ANIPHARMA-2024-FR-000109

PATIENT
  Age: 49 Year
  Sex: Female

DRUGS (2)
  1. ARIMIDEX [Suspect]
     Active Substance: ANASTROZOLE
     Indication: Product used for unknown indication
     Dosage: 1 DF DAILY
     Route: 048
  2. EXEMESTANE [Suspect]
     Active Substance: EXEMESTANE

REACTIONS (3)
  - Colitis [Fatal]
  - Decreased appetite [Fatal]
  - Diarrhoea [Fatal]
